FAERS Safety Report 5088214-1 (Version None)
Quarter: 2006Q3

REPORT INFORMATION
  Report Type: 
  Country: None (occurrence: None)
  Receive Date: 20060821
  Receipt Date: 20060809
  Transmission Date: 20061208
  Serious: Yes (Other)
  Sender: FDA-Public Use
  Company Number: 2006098237

PATIENT

DRUGS (1)
  1. DRAMAMINE DROWSY FORMULA TABLETS (DIMENHYDRINATE) [Suspect]
     Dosage: 8 TABLETS WITHIN 24 HOURS,ORAL
     Route: 048
     Dates: start: 20060809, end: 20060809

REACTIONS (3)
  - INCOHERENT [None]
  - INCORRECT DOSE ADMINISTERED [None]
  - MALAISE [None]
